FAERS Safety Report 10997539 (Version 1)
Quarter: 2015Q2

REPORT INFORMATION
  Report Type: Spontaneous
  Country: US (occurrence: US)
  Receive Date: 20150408
  Receipt Date: 20150408
  Transmission Date: 20150821
  Serious: No
  Sender: FDA-Public Use
  Company Number: US-BANPHARM-20142832

PATIENT
  Age: 94 Year
  Sex: Male
  Weight: 60.77 kg

DRUGS (1)
  1. NAPROXEN SODIUM 220 MG [Suspect]
     Active Substance: NAPROXEN SODIUM
     Indication: PAIN
     Dosage: 1 DF,
     Route: 048
     Dates: start: 201406, end: 201406

REACTIONS (2)
  - Feeling abnormal [Recovered/Resolved]
  - Sudden onset of sleep [Recovered/Resolved]
